FAERS Safety Report 13165870 (Version 1)
Quarter: 2017Q1

REPORT INFORMATION
  Report Type: Spontaneous
  Country: US (occurrence: US)
  Receive Date: 20170126
  Receipt Date: 20170126
  Transmission Date: 20170428
  Serious: Yes (Hospitalization)
  Sender: FDA-Public Use
  Company Number: None

PATIENT
  Age: 74 Year
  Sex: Male
  Weight: 87 kg

DRUGS (1)
  1. BISOPROLOL [Suspect]
     Active Substance: BISOPROLOL
     Indication: HYPERTENSION
     Dosage: MG PO
     Route: 048
     Dates: start: 20150422, end: 20161118

REACTIONS (3)
  - Syncope [None]
  - Bradycardia [None]
  - Atrioventricular block first degree [None]

NARRATIVE: CASE EVENT DATE: 20161118
